FAERS Safety Report 8889052 (Version 1)
Quarter: 2012Q4

REPORT INFORMATION
  Report Type: 
  Country: CH (occurrence: CH)
  Receive Date: 20121106
  Receipt Date: 20121106
  Transmission Date: 20130627
  Serious: Yes (Death, Life-Threatening)
  Sender: FDA-Public Use
  Company Number: CH-ASTRAZENECA-2012SE84092

PATIENT
  Age: 61 Year
  Sex: Male

DRUGS (10)
  1. SEROQUEL [Suspect]
     Route: 048
     Dates: end: 2010
  2. SEROQUEL [Suspect]
     Route: 048
     Dates: start: 20110308, end: 20110310
  3. SEROQUEL [Suspect]
     Route: 048
     Dates: start: 20110311, end: 20110313
  4. SEROQUEL [Suspect]
     Dosage: UPTO MAX 250MG/DAY
     Route: 048
     Dates: start: 20110308, end: 20110313
  5. QUILONORM [Suspect]
     Route: 048
     Dates: end: 2010
  6. QUILONORM [Suspect]
     Route: 048
     Dates: start: 20110308, end: 20110313
  7. TEMESTA [Suspect]
     Route: 048
     Dates: start: 20110311, end: 20110313
  8. PANTOZOL [Concomitant]
     Route: 048
     Dates: start: 20110310, end: 20110313
  9. TARDYFERON-FOL [Concomitant]
     Route: 048
     Dates: start: 20110310, end: 20110313
  10. MOVICOL [Concomitant]
     Dosage: ONE SACHET
     Dates: start: 20110310, end: 20110313

REACTIONS (6)
  - Coronary artery occlusion [Fatal]
  - Myocardial infarction [Fatal]
  - Stress [Unknown]
  - Apathy [Unknown]
  - Anxiety [Unknown]
  - Adverse event [Unknown]
